FAERS Safety Report 7044975-3 (Version None)
Quarter: 2010Q4

REPORT INFORMATION
  Report Type: 
  Country: None (occurrence: None)
  Receive Date: 20101014
  Receipt Date: 20101012
  Transmission Date: 20110411
  Serious: Yes (Hospitalization)
  Sender: FDA-Public Use
  Company Number: US-BRISTOL-MYERS SQUIBB COMPANY-15302821

PATIENT
  Age: 57 Year
  Sex: Female
  Weight: 50 kg

DRUGS (2)
  1. IXEMPRA KIT [Suspect]
     Indication: BREAST CANCER
     Dosage: 16 MG/M2 :1 HR ON DAYS 1, 8 AND 15 CYCLE:28
     Route: 042
     Dates: start: 20091204, end: 20100604
  2. BEVACIZUMAB [Suspect]
     Indication: BREAST CANCER
     Dosage: 10 MG/KG :30-90 MM ON DAYS 1 AND 15 CYCLE:28
     Route: 042
     Dates: start: 20091204, end: 20100604

REACTIONS (1)
  - CHOLECYSTITIS [None]
